FAERS Safety Report 25717382 (Version 2)
Quarter: 2025Q4

REPORT INFORMATION
  Report Type: Spontaneous
  Country: US (occurrence: US)
  Receive Date: 20250822
  Receipt Date: 20251126
  Transmission Date: 20260118
  Serious: Yes (Other)
  Sender: JOHNSON AND JOHNSON
  Company Number: US-JNJFOC-20250820062

PATIENT
  Age: 67 Year
  Sex: Male

DRUGS (1)
  1. CARVYKTI [Suspect]
     Active Substance: CILTACABTAGENE AUTOLEUCEL
     Indication: Plasma cell myeloma refractory
     Dosage: 0.75 ? 10 6/KG CAR+ T CELLS
     Route: 065

REACTIONS (8)
  - Cytokine release syndrome [Unknown]
  - Immune effector cell-associated neurotoxicity syndrome [Unknown]
  - Immune effector cell-associated HLH-like syndrome [Unknown]
  - Colitis ischaemic [Unknown]
  - Clostridium bacteraemia [Unknown]
  - Aspergillus infection [Unknown]
  - Cytopenia [Unknown]
  - Parkinsonism [Unknown]
